FAERS Safety Report 7898664-3 (Version None)
Quarter: 2011Q4

REPORT INFORMATION
  Report Type: 
  Country: None (occurrence: None)
  Receive Date: 20111101
  Receipt Date: 20100924
  Transmission Date: 20120403
  Serious: Yes (Hospitalization)
  Sender: FDA-Public Use
  Company Number: 249613USA

PATIENT
  Sex: Female

DRUGS (1)
  1. CLONAZEPAM [Suspect]
     Dosage: (1 MG), ORAL
     Route: 048

REACTIONS (2)
  - DEHYDRATION [None]
  - IMPAIRED DRIVING ABILITY [None]
